FAERS Safety Report 5114567-1 (Version None)
Quarter: 2006Q3

REPORT INFORMATION
  Report Type: 
  Country: None (occurrence: None)
  Receive Date: 20060921
  Receipt Date: 20060906
  Transmission Date: 20061208
  Serious: Yes (Hospitalization)
  Sender: FDA-Public Use
  Company Number: GXKR2006GB05486

PATIENT
  Age: 42 Year
  Sex: Female

DRUGS (3)
  1. CITALOPRAM                         UNKNOWN [Suspect]
     Indication: BIPOLAR DISORDER
     Dosage: 40 MG, QD
  2. QUETIAPINE FUMARATE [Suspect]
     Indication: BIPOLAR DISORDER
     Dosage: SEE IMAGE
  3. ALPRAZOLAM [Concomitant]

REACTIONS (10)
  - AGITATION [None]
  - BLOOD CREATINE PHOSPHOKINASE INCREASED [None]
  - DEHYDRATION [None]
  - DELIRIUM [None]
  - DRUG INTERACTION [None]
  - HEADACHE [None]
  - HYPERREFLEXIA [None]
  - MUSCLE RIGIDITY [None]
  - SEROTONIN SYNDROME [None]
  - URINARY INCONTINENCE [None]
